FAERS Safety Report 8454824-4 (Version None)
Quarter: 2012Q2

REPORT INFORMATION
  Report Type: 
  Country: None (occurrence: None)
  Receive Date: 20120621
  Receipt Date: 20120612
  Transmission Date: 20120825
  Serious: Yes (Hospitalization)
  Sender: FDA-Public Use
  Company Number: FR-JNJFOC-20120101112

PATIENT
  Sex: Female
  Weight: 90.2 kg

DRUGS (10)
  1. PRAVASTATIN [Concomitant]
     Indication: HYPERCHOLESTEROLAEMIA
  2. LEVOTHYROXINE SODIUM [Concomitant]
     Indication: HYPOTHYROIDISM
  3. METFORMIN HCL [Concomitant]
     Indication: DIABETES MELLITUS
  4. TERCIAN [Concomitant]
     Indication: ANXIETY
     Dosage: 0-0-0.5-1
     Dates: end: 20111228
  5. PALIPERIDONE [Suspect]
     Indication: SCHIZOPHRENIA
     Route: 030
     Dates: start: 20111116
  6. CLONAZEPAM [Concomitant]
     Indication: INSOMNIA
     Dosage: 0-0-0-1
  7. DEPAKENE [Concomitant]
     Indication: AFFECT LABILITY
     Dosage: 1-0-1
  8. PLAVIX [Concomitant]
     Indication: ANTICOAGULANT THERAPY
  9. XALATAN [Concomitant]
     Indication: GLAUCOMA
  10. PRAVASTATIN [Concomitant]
     Indication: PRODUCT USED FOR UNKNOWN INDICATION

REACTIONS (1)
  - BACK PAIN [None]
